FAERS Safety Report 11992976 (Version 1)
Quarter: 2016Q1

REPORT INFORMATION
  Report Type: Spontaneous
  Country: US (occurrence: US)
  Receive Date: 20160203
  Receipt Date: 20160203
  Transmission Date: 20160526
  Serious: No
  Sender: FDA-Public Use
  Company Number: US-UCBSA-2015015341

PATIENT

DRUGS (3)
  1. KEPPRA [Suspect]
     Active Substance: LEVETIRACETAM
     Indication: SEIZURE
     Dosage: 2 KEPPRA/DAY
  2. KEPPRA [Suspect]
     Active Substance: LEVETIRACETAM
     Dosage: 2000MG/DAY
  3. KEPPRA [Suspect]
     Active Substance: LEVETIRACETAM
     Dosage: 3/DAY

REACTIONS (3)
  - Anger [Recovered/Resolved]
  - Seizure [Unknown]
  - Depression [Recovered/Resolved]
